FAERS Safety Report 6458839-7 (Version None)
Quarter: 2009Q4

REPORT INFORMATION
  Report Type: 
  Country: None (occurrence: None)
  Receive Date: 20091123
  Receipt Date: 20091111
  Transmission Date: 20100525
  Serious: Yes (Death, Life-Threatening, Other)
  Sender: FDA-Public Use
  Company Number: 2009-04075

PATIENT

DRUGS (2)
  1. VELCADE [Suspect]
     Indication: MULTIPLE MYELOMA
     Dosage: 1.3 MG/M2, INTRAVENOUS
     Route: 042
     Dates: start: 20090918, end: 20090918
  2. DEXAMETHASONE TAB [Concomitant]

REACTIONS (8)
  - ALTERED STATE OF CONSCIOUSNESS [None]
  - CARDIAC FAILURE [None]
  - CONDITION AGGRAVATED [None]
  - HAEMOGLOBIN DECREASED [None]
  - INFECTION [None]
  - MULTIPLE MYELOMA [None]
  - OSMOTIC DEMYELINATION SYNDROME [None]
  - SPEECH DISORDER [None]
